FAERS Safety Report 15491576 (Version 1)
Quarter: 2018Q4

REPORT INFORMATION
  Report Type: Report from Study
  Country: CN (occurrence: CN)
  Receive Date: 20181012
  Receipt Date: 20181012
  Transmission Date: 20190205
  Serious: Yes (Other)
  Sender: FDA-Public Use
  Company Number: CN-ROCHE-2195492

PATIENT
  Age: 83 Year
  Sex: Female

DRUGS (1)
  1. ALTEPLASE. [Suspect]
     Active Substance: ALTEPLASE
     Indication: ISCHAEMIC STROKE
     Route: 042
     Dates: start: 20180907, end: 20180907

REACTIONS (2)
  - Thrombolysis [Unknown]
  - Overdose [Unknown]

NARRATIVE: CASE EVENT DATE: 20180907
